FAERS Safety Report 7526667-7 (Version None)
Quarter: 2011Q2

REPORT INFORMATION
  Report Type: 
  Country: None (occurrence: None)
  Receive Date: 20110606
  Receipt Date: 20110530
  Transmission Date: 20111010
  Serious: Yes (Other)
  Sender: FDA-Public Use
  Company Number: US-TEVA-283974USA

PATIENT
  Age: 69 Year
  Sex: Male

DRUGS (1)
  1. OXYBUTYNIN CHLORIDE [Suspect]

REACTIONS (2)
  - RENAL FAILURE [None]
  - URINARY INCONTINENCE [None]
